FAERS Safety Report 17073119 (Version 2)
Quarter: 2020Q1

REPORT INFORMATION
  Report Type: Spontaneous
  Country: US (occurrence: US)
  Receive Date: 20191125
  Receipt Date: 20200224
  Transmission Date: 20200409
  Serious: No
  Sender: FDA-Public Use
  Company Number: US-SHIONOGI, INC-2019001054

PATIENT
  Age: 43 Year
  Sex: Female

DRUGS (1)
  1. MULPLETA [Suspect]
     Active Substance: LUSUTROMBOPAG
     Indication: THROMBOCYTOPENIA
     Dosage: UNK, 1 PER 1 DAY
     Route: 048

REACTIONS (1)
  - Therapeutic response decreased [Unknown]

NARRATIVE: CASE EVENT DATE: 201907
